FAERS Safety Report 14673459 (Version 1)
Quarter: 2018Q1

REPORT INFORMATION
  Report Type: Spontaneous
  Country: US (occurrence: US)
  Receive Date: 20180322
  Receipt Date: 20180322
  Transmission Date: 20180509
  Serious: No
  Sender: FDA-Public Use
  Company Number: None

PATIENT
  Sex: Female

DRUGS (4)
  1. TRAVATAN [Concomitant]
     Active Substance: TRAVOPROST
  2. TIMOLOL MALEATE. [Suspect]
     Active Substance: TIMOLOL MALEATE
  3. LATANOPROST. [Suspect]
     Active Substance: LATANOPROST
  4. TRAVAPROST [Concomitant]

REACTIONS (3)
  - Erythema [None]
  - Hypersensitivity [None]
  - Burning sensation [None]
